FAERS Safety Report 9859810 (Version 1)
Quarter: 2014Q1

REPORT INFORMATION
  Report Type: Report from Study
  Country: US (occurrence: US)
  Receive Date: 20140131
  Receipt Date: 20140131
  Transmission Date: 20141002
  Serious: Yes (Hospitalization)
  Sender: FDA-Public Use
  Company Number: US-ABBVIE-14P-163-1193658-00

PATIENT
  Age: 30 Year
  Sex: Female
  Weight: 52.66 kg

DRUGS (10)
  1. HUMIRA [Suspect]
     Indication: CROHN^S DISEASE
     Dates: start: 2005, end: 2005
  2. HUMIRA [Suspect]
     Dates: start: 2005, end: 2005
  3. HUMIRA [Suspect]
     Dates: start: 2005, end: 201308
  4. HUMIRA [Suspect]
     Dates: start: 201312
  5. PENTAZA [Concomitant]
     Indication: CROHN^S DISEASE
  6. PRISTIQ [Concomitant]
     Indication: NERVOUSNESS
  7. OCELLA [Concomitant]
     Indication: CONTRACEPTION
  8. AMBIEN [Concomitant]
     Indication: INSOMNIA
  9. CALCIUM [Concomitant]
     Indication: MINERAL SUPPLEMENTATION
  10. MULTIVITAMIN [Concomitant]
     Indication: VITAMIN SUPPLEMENTATION

REACTIONS (11)
  - Weight decreased [Not Recovered/Not Resolved]
  - Diarrhoea [Recovered/Resolved]
  - Vomiting [Recovered/Resolved]
  - Gastrooesophageal reflux disease [Recovered/Resolved]
  - Impaired healing [Recovered/Resolved]
  - Wound complication [Recovered/Resolved]
  - Wound secretion [Recovered/Resolved]
  - Anaemia [Not Recovered/Not Resolved]
  - Vitamin D deficiency [Not Recovered/Not Resolved]
  - Crohn^s disease [Recovered/Resolved]
  - Blood iron decreased [Unknown]
